FAERS Safety Report 4596482-5 (Version None)
Quarter: 2005Q1

REPORT INFORMATION
  Report Type: 
  Country: None (occurrence: None)
  Receive Date: 20050228
  Receipt Date: 20050211
  Transmission Date: 20050727
  Serious: Yes (Hospitalization)
  Sender: FDA-Public Use
  Company Number: S05-FRA-00352-01

PATIENT
  Age: 46 Year
  Sex: Female

DRUGS (6)
  1. SEROPLEX (ESCITALOPRAM) [Suspect]
     Dosage: 1 TABLET QD PO
     Route: 048
     Dates: start: 20030621, end: 20030731
  2. MYOLASTAN (TETRAZEPAM) [Suspect]
     Dosage: 1 QD PO
     Route: 048
     Dates: start: 20030718, end: 20030723
  3. CELEBREX [Suspect]
     Dosage: 1 QD RC
     Dates: start: 20030718, end: 20030723
  4. STILLNOX (ZOLPIDEM) [Suspect]
     Dosage: 1 Q PO
     Route: 048
     Dates: start: 20030621, end: 20030731
  5. ACETAMINOPHEN [Suspect]
     Dosage: 2 G QD PO
     Route: 048
     Dates: start: 20030718, end: 20030723
  6. OMEPRAZOLE [Suspect]
     Dosage: 1 QD PO
     Route: 048
     Dates: start: 20030718, end: 20030723

REACTIONS (4)
  - ANAL INFECTION [None]
  - DIABETES MELLITUS [None]
  - HERPES SIMPLEX [None]
  - STEVENS-JOHNSON SYNDROME [None]
